FAERS Safety Report 7791612-6 (Version None)
Quarter: 2011Q4

REPORT INFORMATION
  Report Type: 
  Country: None (occurrence: None)
  Receive Date: 20111003
  Receipt Date: 20110926
  Transmission Date: 20120403
  Serious: Yes (Death)
  Sender: FDA-Public Use
  Company Number: JP-ASTELLAS-2011JP006826

PATIENT
  Age: 68 Year
  Sex: Male

DRUGS (6)
  1. RHEUMATREX [Concomitant]
     Dosage: 8 MG, UNKNOWN/D
     Route: 048
     Dates: start: 20100706, end: 20101101
  2. RHEUMATREX [Concomitant]
     Dosage: 6 MG, UNKNOWN/D
     Route: 048
     Dates: start: 20100223, end: 20100706
  3. PROGRAF [Suspect]
     Indication: RHEUMATOID ARTHRITIS
     Dosage: 1 MG, UNKNOWN/D
     Route: 048
     Dates: start: 20100323, end: 20100910
  4. CELECOXIB [Concomitant]
     Indication: RHEUMATOID ARTHRITIS
     Dosage: 400 MG, UNKNOWN/D
     Route: 048
     Dates: start: 20100123, end: 20100830
  5. RHEUMATREX [Concomitant]
     Dosage: 4 MG, UNKNOWN/D
     Route: 048
     Dates: start: 20100123, end: 20100223
  6. LANSOPRAZOLE [Concomitant]
     Dosage: 15 MG, UNKNOWN/D
     Route: 048
     Dates: start: 20100830, end: 20101101

REACTIONS (1)
  - BLADDER CANCER [None]
